FAERS Safety Report 21442083 (Version 1)
Quarter: 2022Q4

REPORT INFORMATION
  Report Type: Spontaneous
  Country: US (occurrence: US)
  Receive Date: 20221011
  Receipt Date: 20221011
  Transmission Date: 20230113
  Serious: No
  Sender: FDA-Public Use
  Company Number: US-Sprout Pharmaceuticals, Inc.-2022SP000001

PATIENT
  Age: 61 Year
  Sex: Female

DRUGS (7)
  1. ADDYI [Suspect]
     Active Substance: FLIBANSERIN
     Indication: Product used for unknown indication
     Route: 048
     Dates: start: 202112
  2. LIPITOR [Concomitant]
     Active Substance: ATORVASTATIN CALCIUM
     Indication: Product used for unknown indication
     Route: 065
  3. ESTRADIOL [Concomitant]
     Active Substance: ESTRADIOL
     Indication: Product used for unknown indication
     Dosage: .0317 TWICE A WEEK
     Route: 062
  4. PROGESTERONE [Concomitant]
     Active Substance: PROGESTERONE
     Indication: Product used for unknown indication
     Route: 065
  5. licentipril [Concomitant]
     Indication: Product used for unknown indication
     Dosage: 10-12.5 MG
     Route: 065
  6. tamazpan [Concomitant]
     Indication: Insomnia
     Route: 065
  7. z-quil [Concomitant]
     Indication: Insomnia
     Route: 065

REACTIONS (4)
  - Abnormal dreams [Not Recovered/Not Resolved]
  - Middle insomnia [Not Recovered/Not Resolved]
  - Insomnia [Not Recovered/Not Resolved]
  - Dry mouth [Recovered/Resolved]

NARRATIVE: CASE EVENT DATE: 20211201
